FAERS Safety Report 17204744 (Version 2)
Quarter: 2020Q1

REPORT INFORMATION
  Report Type: Spontaneous
  Country: US (occurrence: US)
  Receive Date: 20191226
  Receipt Date: 20200117
  Transmission Date: 20200409
  Serious: No
  Sender: FDA-Public Use
  Company Number: US-SHIRE-US201944452

PATIENT
  Sex: Female
  Weight: 58.05 kg

DRUGS (3)
  1. LATANOPROST. [Concomitant]
     Active Substance: LATANOPROST
     Indication: GLAUCOMA
     Dosage: UNK
     Route: 047
     Dates: start: 2014
  2. XALATAN [Concomitant]
     Active Substance: LATANOPROST
     Indication: GLAUCOMA
     Dosage: UNK
     Route: 047
     Dates: start: 2014, end: 2015
  3. XIIDRA [Suspect]
     Active Substance: LIFITEGRAST
     Indication: PRODUCT USED FOR UNKNOWN INDICATION
     Dosage: 1 DROP, 2X/DAY:BID
     Route: 047
     Dates: start: 20180430

REACTIONS (3)
  - Ocular hyperaemia [Unknown]
  - Condition aggravated [Unknown]
  - Eye irritation [Unknown]
